FAERS Safety Report 19099243 (Version 1)
Quarter: 2021Q2

REPORT INFORMATION
  Report Type: Report from Study
  Country: GB (occurrence: GB)
  Receive Date: 20210406
  Receipt Date: 20210406
  Transmission Date: 20210717
  Serious: Yes (Death)
  Sender: FDA-Public Use
  Company Number: GB-PFIZER INC-2021336029

PATIENT
  Sex: Female

DRUGS (3)
  1. VANCOMYCIN HCL [Suspect]
     Active Substance: VANCOMYCIN HYDROCHLORIDE
     Indication: PERITONITIS
     Dosage: 15 MG/L  DIALYSATE
     Route: 033
  2. AMPHOTERICIN B. [Concomitant]
     Active Substance: AMPHOTERICIN B
     Indication: CANDIDA INFECTION
     Dosage: UNK
  3. CEFTAZIDIME. [Suspect]
     Active Substance: CEFTAZIDIME
     Indication: PERITONITIS
     Dosage: 100 MG/L DIALYSATE
     Route: 033

REACTIONS (1)
  - Drug ineffective [Fatal]
